FAERS Safety Report 6862104-3 (Version None)
Quarter: 2010Q3

REPORT INFORMATION
  Report Type: 
  Country: None (occurrence: None)
  Receive Date: 20100721
  Receipt Date: 20100708
  Transmission Date: 20110219
  Serious: Yes (Hospitalization)
  Sender: FDA-Public Use
  Company Number: FR-ELI_LILLY_AND_COMPANY-FR201007001480

PATIENT
  Sex: Female

DRUGS (5)
  1. PROZAC [Suspect]
     Indication: DEPRESSION
     Dosage: 20 MG, DAILY (1/D)
     Route: 048
  2. LEVOTHYROXINE SODIUM [Concomitant]
  3. DOLIPRANE [Concomitant]
     Dates: start: 20100512
  4. IBUPROFEN [Concomitant]
     Dates: start: 20100512
  5. HALDOL [Concomitant]
     Dates: end: 20100512

REACTIONS (4)
  - DRUG WITHDRAWAL SYNDROME [None]
  - HALLUCINATION [None]
  - SYNCOPE [None]
  - VERTIGO [None]
